FAERS Safety Report 5052335-X (Version None)
Quarter: 2006Q3

REPORT INFORMATION
  Report Type: 
  Country: None (occurrence: None)
  Receive Date: 20060717
  Receipt Date: 20060710
  Transmission Date: 20061208
  Serious: Yes (Life-Threatening, Hospitalization)
  Sender: FDA-Public Use
  Company Number: PHFR2006GB02192

PATIENT
  Sex: Female

DRUGS (2)
  1. BENDROFLUMETHIAZIDE [Suspect]
     Indication: BLOOD PRESSURE INCREASED
     Dosage: 2.5MG / DAY
     Route: 048
     Dates: start: 20060512, end: 20060526
  2. LETROZOLE [Suspect]
     Indication: BREAST CANCER
     Dosage: 2.5MG / DAY
     Route: 048
     Dates: start: 20060301, end: 20060526

REACTIONS (1)
  - BLOOD SODIUM DECREASED [None]
